FAERS Safety Report 14132784 (Version 1)
Quarter: 2017Q4

REPORT INFORMATION
  Report Type: Report from Study
  Country: US (occurrence: US)
  Receive Date: 20171027
  Receipt Date: 20171027
  Transmission Date: 20180321
  Serious: No
  Sender: FDA-Public Use
  Company Number: US-ROCHE-2011607

PATIENT
  Sex: Male

DRUGS (1)
  1. OCREVUS [Suspect]
     Active Substance: OCRELIZUMAB
     Indication: MULTIPLE SCLEROSIS
     Dosage: ONGOING; YES
     Route: 065
     Dates: start: 20170705

REACTIONS (3)
  - Ocular hyperaemia [Not Recovered/Not Resolved]
  - Eye infection bacterial [Recovered/Resolved]
  - Dry eye [Not Recovered/Not Resolved]
